FAERS Safety Report 9253152 (Version 1)
Quarter: 2013Q2

REPORT INFORMATION
  Report Type: Spontaneous
  Country: BR (occurrence: BR)
  Receive Date: 20130424
  Receipt Date: 20130424
  Transmission Date: 20140414
  Serious: Yes (Other)
  Sender: FDA-Public Use
  Company Number: PHHY2013BR038938

PATIENT
  Sex: Female
  Weight: 82 kg

DRUGS (5)
  1. BUFFERIN [Suspect]
     Indication: CARDIOVASCULAR DISORDER
     Dosage: 2 DF, DAILY
     Route: 048
     Dates: end: 20130320
  2. SOMALGIN [Suspect]
     Indication: CARDIOVASCULAR DISORDER
     Dosage: 2 DF, DAILY
     Route: 048
     Dates: start: 20130320, end: 20130403
  3. GLIFAGE [Concomitant]
     Indication: DIABETES MELLITUS
     Dosage: 2 DF, DAILY
     Route: 048
  4. INSULIN NOVOLIN [Concomitant]
     Indication: DIABETES MELLITUS
     Dosage: 70 ML, DAILY
     Route: 042
  5. ARTRODAR [Concomitant]
     Indication: PAIN
     Dosage: 2 DF, DAILY
     Route: 048

REACTIONS (6)
  - Bone disorder [Recovering/Resolving]
  - Asthma [Not Recovered/Not Resolved]
  - Dyspnoea [Recovered/Resolved]
  - Arthralgia [Recovered/Resolved]
  - Feeling hot [Not Recovered/Not Resolved]
  - Bronchitis [Not Recovered/Not Resolved]
